FAERS Safety Report 10205915 (Version 1)
Quarter: 2014Q2

REPORT INFORMATION
  Report Type: Spontaneous
  Country: IT (occurrence: IT)
  Receive Date: 20140530
  Receipt Date: 20140530
  Transmission Date: 20141212
  Serious: Yes (Other)
  Sender: FDA-Public Use
  Company Number: IT-AMGEN-ITASP2014039178

PATIENT
  Age: 57 Year
  Sex: Female

DRUGS (1)
  1. XGEVA [Suspect]
     Indication: METASTASES TO BONE
     Dosage: 120 MG, CYCLICAL
     Route: 058

REACTIONS (1)
  - Osteonecrosis of jaw [Not Recovered/Not Resolved]
